FAERS Safety Report 13628609 (Version 1)
Quarter: 2017Q2

REPORT INFORMATION
  Report Type: Spontaneous
  Country: JP (occurrence: JP)
  Receive Date: 20170607
  Receipt Date: 20170607
  Transmission Date: 20170830
  Serious: Yes (Other)
  Sender: FDA-Public Use
  Company Number: JP-JNJFOC-20170604969

PATIENT
  Age: 78 Year
  Sex: Male

DRUGS (1)
  1. XARELTO [Suspect]
     Active Substance: RIVAROXABAN
     Indication: PULMONARY THROMBOSIS
     Route: 048

REACTIONS (8)
  - Hypertension [Unknown]
  - Head discomfort [Unknown]
  - Malaise [Unknown]
  - Spontaneous penile erection [Unknown]
  - Palpitations [Unknown]
  - Gingival bleeding [Unknown]
  - Purpura [Unknown]
  - Dizziness [Unknown]
